FAERS Safety Report 19047356 (Version 5)
Quarter: 2021Q3

REPORT INFORMATION
  Report Type: Report from Study
  Country: CA (occurrence: CA)
  Receive Date: 20210323
  Receipt Date: 20210924
  Transmission Date: 20211014
  Serious: Yes (Hospitalization, Other)
  Sender: FDA-Public Use
  Company Number: CA-OTSUKA-2021_002344

PATIENT
  Age: 80 Year
  Sex: Male

DRUGS (2)
  1. CEDAZURIDINE AND DECITABINE [Suspect]
     Active Substance: CEDAZURIDINE\DECITABINE
     Indication: CHRONIC MYELOMONOCYTIC LEUKAEMIA
     Dosage: (35 MG DECITABINE AND 100 MG CEDAZURIDINE) X 3 DAYS
     Route: 065
     Dates: start: 20210610
  2. CEDAZURIDINE AND DECITABINE [Suspect]
     Active Substance: CEDAZURIDINE\DECITABINE
     Indication: MYELODYSPLASTIC SYNDROME
     Dosage: (35 MG DECITABINE AND 100 MG CEDAZURIDINE) , UNK
     Route: 065
     Dates: start: 20201228

REACTIONS (14)
  - Endocarditis [Unknown]
  - Initial insomnia [Unknown]
  - Red blood cell count abnormal [Recovering/Resolving]
  - Back pain [Unknown]
  - Product use issue [Unknown]
  - Headache [Unknown]
  - Fatigue [Unknown]
  - White blood cell count decreased [Recovering/Resolving]
  - Platelet count decreased [Recovering/Resolving]
  - Product storage error [Unknown]
  - Skin discolouration [Unknown]
  - Biopsy [Unknown]
  - Gait disturbance [Unknown]
  - Sepsis [Unknown]

NARRATIVE: CASE EVENT DATE: 202106
